FAERS Safety Report 5782663-1 (Version None)
Quarter: 2008Q2

REPORT INFORMATION
  Report Type: 
  Country: None (occurrence: None)
  Receive Date: 20080624
  Receipt Date: 20080617
  Transmission Date: 20081010
  Serious: Yes (Hospitalization, Other)
  Sender: FDA-Public Use
  Company Number: DE-BAYER-200818929GPV

PATIENT
  Age: 22 Year
  Sex: Female

DRUGS (1)
  1. BETAFERON [Suspect]
     Indication: MULTIPLE SCLEROSIS
     Route: 058
     Dates: start: 20080401, end: 20080515

REACTIONS (5)
  - BODY TEMPERATURE INCREASED [None]
  - HEADACHE [None]
  - INFLUENZA LIKE ILLNESS [None]
  - MENINGITIS BACTERIAL [None]
  - PYREXIA [None]
